FAERS Safety Report 10226522 (Version 1)
Quarter: 2014Q2

REPORT INFORMATION
  Report Type: Spontaneous
  Country: US (occurrence: US)
  Receive Date: 20140609
  Receipt Date: 20140609
  Transmission Date: 20141212
  Serious: No
  Sender: FDA-Public Use
  Company Number: US-AMGEN INC.-USASP2013072192

PATIENT
  Age: 55 Year
  Sex: Male
  Weight: 50.79 kg

DRUGS (10)
  1. PROCRIT [Suspect]
     Indication: THALASSAEMIA
     Dosage: UNK
     Route: 065
  2. LISINOPRIL [Concomitant]
     Indication: CARDIAC DISORDER
     Dosage: 20MG/ONCE A DAY
     Route: 048
  3. LISINOPRIL [Concomitant]
     Indication: HYPERTENSION
  4. SIMVASTATIN [Concomitant]
     Indication: CARDIAC DISORDER
     Dosage: 10 MG, ONCE A DAY
     Route: 048
  5. SIMVASTATIN [Concomitant]
     Indication: BLOOD CHOLESTEROL INCREASED
  6. NIFEDICAL [Concomitant]
     Indication: CARDIAC DISORDER
     Dosage: 60 MG, ONCE A DAY
     Route: 048
  7. NIFEDICAL [Concomitant]
     Indication: HYPERTENSION
  8. RANITIDINE [Concomitant]
     Dosage: 150 MG, ONCE A DAY
     Route: 048
  9. LORAZEPAM [Concomitant]
     Indication: SLEEP DISORDER
     Dosage: 10 MG, UNK
  10. SODIUM BICARBONATE [Concomitant]
     Indication: ANTACID THERAPY
     Dosage: 650 MG, TWICE A DAY
     Route: 048

REACTIONS (4)
  - Asthenia [Not Recovered/Not Resolved]
  - Feeling abnormal [Not Recovered/Not Resolved]
  - Quality of life decreased [Not Recovered/Not Resolved]
  - Blood test abnormal [Not Recovered/Not Resolved]
